FAERS Safety Report 5227512-5 (Version None)
Quarter: 2007Q1

REPORT INFORMATION
  Report Type: 
  Country: None (occurrence: None)
  Receive Date: 20070202
  Receipt Date: 20070122
  Transmission Date: 20070707
  Serious: Yes (Hospitalization)
  Sender: FDA-Public Use
  Company Number: US-SHR-US-2006-034473

PATIENT
  Age: 61 Year
  Sex: Female
  Weight: 54 kg

DRUGS (8)
  1. BETASERON [Suspect]
     Indication: RELAPSING-REMITTING MULTIPLE SCLEROSIS
     Dosage: 8 MIU, EVERY 2D
     Route: 058
     Dates: start: 20000131
  2. PROTONIX [Concomitant]
     Dosage: 40 MG, 1X/DAY
     Route: 048
  3. LITHIUM CARBONATE [Concomitant]
     Dosage: 300 MG, 2X/DAY
     Route: 048
  4. PREDNISONE [Concomitant]
     Dosage: 40 MG, 1X/DAY, TAPERING
     Route: 048
     Dates: start: 20061104
  5. ACETAMINOPHEN [Concomitant]
     Dosage: UNK, AS REQ'D
     Route: 048
  6. PERCOCET [Concomitant]
     Dosage: UNK, AS REQ'D
     Route: 048
  7. AMBIEN [Concomitant]
     Dosage: UNK, AS REQ'D
     Route: 048
  8. PROMETHAZINE [Concomitant]
     Dosage: 25 MG, AS REQ'D, Q6H

REACTIONS (15)
  - ANXIETY [None]
  - CARDIAC FAILURE CONGESTIVE [None]
  - CHRONIC OBSTRUCTIVE PULMONARY DISEASE [None]
  - DILATATION ATRIAL [None]
  - DILATATION VENTRICULAR [None]
  - ELECTROCARDIOGRAM T WAVE INVERSION [None]
  - EMPHYSEMA [None]
  - GASTROOESOPHAGEAL REFLUX DISEASE [None]
  - HIATUS HERNIA [None]
  - INFLUENZA LIKE ILLNESS [None]
  - INJECTION SITE REACTION [None]
  - IRON DEFICIENCY [None]
  - PAIN [None]
  - TRICUSPID VALVE INCOMPETENCE [None]
  - VENTRICULAR DYSFUNCTION [None]
